FAERS Safety Report 4793678-4 (Version None)
Quarter: 2005Q4

REPORT INFORMATION
  Report Type: 
  Country: None (occurrence: None)
  Receive Date: 20051011
  Receipt Date: 20051004
  Transmission Date: 20060501
  Serious: Yes (Death, Hospitalization)
  Sender: FDA-Public Use
  Company Number: US-JNJFOC-20050902599

PATIENT
  Age: 51 Year
  Sex: Female

DRUGS (3)
  1. DIPHENHYDRAMINE HCL [Suspect]
     Route: 048
  2. DIPHENHYDRAMINE HCL [Suspect]
     Indication: SUICIDE ATTEMPT
     Route: 048
  3. AMITRIPTYLINE HCL [Suspect]
     Indication: SUICIDE ATTEMPT
     Route: 048

REACTIONS (7)
  - ABDOMINAL DISTENSION [None]
  - ACUTE RESPIRATORY DISTRESS SYNDROME [None]
  - AGITATION [None]
  - COMPLETED SUICIDE [None]
  - DEPRESSED LEVEL OF CONSCIOUSNESS [None]
  - METABOLIC ACIDOSIS [None]
  - RESPIRATORY ACIDOSIS [None]
